FAERS Safety Report 9061250 (Version 1)
Quarter: 2013Q1

REPORT INFORMATION
  Report Type: Spontaneous
  Country: US (occurrence: None)
  Receive Date: 20130208
  Receipt Date: 20130208
  Transmission Date: 20140127
  Serious: Yes (Hospitalization, Other)
  Sender: FDA-Public Use
  Company Number: None

PATIENT
  Age: 54 Year
  Sex: Female

DRUGS (10)
  1. AFINITOR [Suspect]
     Indication: RENAL CELL CARCINOMA
     Route: 048
     Dates: start: 20121213
  2. FUROSEMIDE 20MG TABLETS [Concomitant]
  3. POTASSIUM CL 20MEQ ER TABLET [Concomitant]
  4. OXYCODONE [Concomitant]
  5. OXYCONTIN [Concomitant]
  6. VENTOLIN [Concomitant]
  7. LORAZEPAM [Concomitant]
  8. PANTOPRAZOLE [Concomitant]
  9. LASIX TAB 40MG [Concomitant]
  10. AFINITOR TAB 5MG [Concomitant]

REACTIONS (2)
  - Localised intraabdominal fluid collection [None]
  - Oedema peripheral [None]
